FAERS Safety Report 5697550-7 (Version None)
Quarter: 2008Q2

REPORT INFORMATION
  Report Type: 
  Country: None (occurrence: None)
  Receive Date: 20080408
  Receipt Date: 20080328
  Transmission Date: 20081010
  Serious: No
  Sender: FDA-Public Use
  Company Number: US-BAYER-200818386NA

PATIENT
  Age: 34 Year
  Sex: Female
  Weight: 113 kg

DRUGS (1)
  1. MIRENA [Suspect]
     Indication: CONTRACEPTION
     Route: 015
     Dates: start: 20040501

REACTIONS (7)
  - ABDOMINAL PAIN LOWER [None]
  - AMENORRHOEA [None]
  - BACK PAIN [None]
  - DEPRESSION [None]
  - PELVIC INFLAMMATORY DISEASE [None]
  - PROCEDURAL PAIN [None]
  - VAGINAL DISCHARGE [None]
